FAERS Safety Report 9786095 (Version 6)
Quarter: 2014Q2

REPORT INFORMATION
  Report Type: Spontaneous
  Country: CN (occurrence: CN)
  Receive Date: 20131227
  Receipt Date: 20140516
  Transmission Date: 20141212
  Serious: Yes (Hospitalization)
  Sender: FDA-Public Use
  Company Number: PHHY2013CN146997

PATIENT
  Age: 42 Year
  Sex: Male

DRUGS (2)
  1. SEBIVO [Suspect]
     Indication: CHRONIC HEPATITIS B
     Dosage: 600 MG, QD
     Route: 048
     Dates: start: 20130301, end: 20131211
  2. ADEFOVIR DIPIVOXIL [Concomitant]
     Indication: CHRONIC HEPATITIS B
     Dates: start: 201303, end: 20131211

REACTIONS (22)
  - Guillain-Barre syndrome [Unknown]
  - Sinus tachycardia [Unknown]
  - Blood pressure decreased [Unknown]
  - Chronic gastritis [Unknown]
  - Vomiting [Unknown]
  - Decreased appetite [Unknown]
  - Discomfort [Unknown]
  - Hepatic steatosis [Unknown]
  - Jaundice [Unknown]
  - Oedema peripheral [Unknown]
  - Gallbladder disorder [Unknown]
  - Cardiac ventricular disorder [Unknown]
  - General physical health deterioration [Unknown]
  - Rhabdomyolysis [Unknown]
  - Troponin T increased [Unknown]
  - Abasia [Not Recovered/Not Resolved]
  - Hyperlactacidaemia [Recovering/Resolving]
  - Myalgia [Not Recovered/Not Resolved]
  - Muscle fatigue [Unknown]
  - Muscle tightness [Unknown]
  - Blood creatine phosphokinase increased [Unknown]
  - Blood creatine phosphokinase MB increased [Unknown]
